FAERS Safety Report 18638935 (Version 3)
Quarter: 2021Q1

REPORT INFORMATION
  Report Type: Spontaneous
  Country: US (occurrence: US)
  Receive Date: 20201218
  Receipt Date: 20210330
  Transmission Date: 20210419
  Serious: Yes (Death)
  Sender: FDA-Public Use
  Company Number: US-PFIZER INC-2020501523

PATIENT
  Age: 83 Year
  Sex: Female

DRUGS (5)
  1. XGEVA [Concomitant]
     Active Substance: DENOSUMAB
     Indication: BONE DECALCIFICATION
     Dosage: UNK, MONTHLY (INJECTION ONCE A MONTH)
     Dates: end: 20210206
  2. IBRANCE [Suspect]
     Active Substance: PALBOCICLIB
     Dosage: 100 MG, CYCLIC (ON DAYS 1?21, 7 DAYS OFF)
     Route: 048
     Dates: start: 20200922
  3. IBRANCE [Suspect]
     Active Substance: PALBOCICLIB
     Indication: BREAST CANCER FEMALE
     Dosage: 100 MG, CYCLIC (3 WEEKS ON AND 1 WEEK OFF)
     Dates: start: 201901, end: 20210213
  4. ANASTROZOLE. [Concomitant]
     Active Substance: ANASTROZOLE
     Indication: HORMONE SUPPRESSION THERAPY
     Dosage: 1 MG, 1X/DAY
     Dates: end: 202002
  5. FASLODEX [Concomitant]
     Active Substance: FULVESTRANT
     Dosage: UNK (INFUSION)
     Dates: start: 202012, end: 20210206

REACTIONS (2)
  - White blood cell count decreased [Unknown]
  - Neoplasm progression [Fatal]
